FAERS Safety Report 15340089 (Version 9)
Quarter: 2019Q2

REPORT INFORMATION
  Report Type: Report from Study
  Country: US (occurrence: US)
  Receive Date: 20180831
  Receipt Date: 20190419
  Transmission Date: 20190711
  Serious: Yes (Hospitalization, Other)
  Sender: FDA-Public Use
  Company Number: US-CLOVIS ONCOLOGY-CLO-2018-000934

PATIENT
  Age: 50 Year
  Sex: Female

DRUGS (5)
  1. RUBRACA [Suspect]
     Active Substance: RUCAPARIB CAMSYLATE
     Dosage: 600 MG AM/300 MG PM
     Route: 048
     Dates: start: 20181213, end: 20181221
  2. RUBRACA [Suspect]
     Active Substance: RUCAPARIB CAMSYLATE
     Indication: OVARIAN CANCER
     Dosage: 600 MG, BID
     Route: 048
     Dates: start: 20180713, end: 20181212
  3. RUBRACA [Suspect]
     Active Substance: RUCAPARIB CAMSYLATE
     Dosage: 500 MG, BID
     Route: 048
     Dates: start: 20190129
  4. RUBRACA [Suspect]
     Active Substance: RUCAPARIB CAMSYLATE
     Dosage: 500 MG, BID
     Route: 048
     Dates: start: 20181222, end: 20190105
  5. RUBRACA [Suspect]
     Active Substance: RUCAPARIB CAMSYLATE
     Dosage: 500 MG, BID
     Route: 048
     Dates: start: 20181222

REACTIONS (15)
  - Anaemia [Recovering/Resolving]
  - Seasonal allergy [Unknown]
  - Haemoglobin decreased [Recovered/Resolved]
  - Decreased appetite [Recovering/Resolving]
  - Eye haemorrhage [Recovered/Resolved]
  - Alopecia [Recovered/Resolved]
  - Somnolence [Unknown]
  - Blood count abnormal [Recovered/Resolved]
  - Fatigue [Recovering/Resolving]
  - Pain in extremity [Unknown]
  - Depression [Recovered/Resolved]
  - Abdominal pain upper [Unknown]
  - Product dose omission [Unknown]
  - Headache [Recovered/Resolved]
  - Dysgeusia [Not Recovered/Not Resolved]

NARRATIVE: CASE EVENT DATE: 2018
